FAERS Safety Report 19477195 (Version 2)
Quarter: 2021Q3

REPORT INFORMATION
  Report Type: Spontaneous
  Country: DE (occurrence: DE)
  Receive Date: 20210630
  Receipt Date: 20210706
  Transmission Date: 20211014
  Serious: Yes (Hospitalization)
  Sender: FDA-Public Use
  Company Number: DE-GLAXOSMITHKLINE-DE2021EME139002

PATIENT

DRUGS (1)
  1. JEMPERLI [Suspect]
     Active Substance: DOSTARLIMAB-GXLY
     Indication: PRODUCT USED FOR UNKNOWN INDICATION
     Dosage: UNK

REACTIONS (1)
  - Lung disorder [Unknown]
